FAERS Safety Report 8407390-3 (Version None)
Quarter: 2012Q2

REPORT INFORMATION
  Report Type: 
  Country: None (occurrence: None)
  Receive Date: 20120604
  Receipt Date: 20120525
  Transmission Date: 20120825
  Serious: Yes (Other)
  Sender: FDA-Public Use
  Company Number: US-ASTRAZENECA-2012SE34012

PATIENT
  Sex: Female

DRUGS (10)
  1. POTASSIUM CHLORIDE [Concomitant]
     Indication: FLUID REPLACEMENT
  2. NEXIUM [Suspect]
     Indication: ABDOMINAL DISCOMFORT
     Route: 048
  3. EFFIENT [Concomitant]
     Indication: ANTIPLATELET THERAPY
  4. LISINOPRIL AND HYDROCHLOROTHIAZIDE [Concomitant]
     Indication: BLOOD PRESSURE
     Dosage: 20/25 DAILY
     Route: 048
  5. FLEXERIL [Concomitant]
     Indication: PAIN
     Dosage: 1-2 TAB AT NIGHT
  6. ALBUTEROL [Concomitant]
     Indication: ASTHMA
     Dosage: AS REQUIRED
  7. GLYPERIZE [Concomitant]
     Indication: DIABETES MELLITUS
     Dosage: 5/500 TID
  8. BISOPROLOL FUMARATE [Concomitant]
     Indication: BLOOD PRESSURE
  9. LIPITOR [Concomitant]
     Indication: CARDIAC DISORDER
     Dosage: AT NIGHT
  10. PROAIR HFA [Concomitant]
     Indication: ASTHMA
     Dosage: AS REQUIRED

REACTIONS (4)
  - CHEST DISCOMFORT [None]
  - OFF LABEL USE [None]
  - DRUG DOSE OMISSION [None]
  - WEIGHT DECREASED [None]
